FAERS Safety Report 6200260-0 (Version None)
Quarter: 2009Q2

REPORT INFORMATION
  Report Type: 
  Country: None (occurrence: None)
  Receive Date: 20090522
  Receipt Date: 20090515
  Transmission Date: 20091009
  Serious: Yes (Death, Other)
  Sender: FDA-Public Use
  Company Number: ZA-BAXTER-2009BH008794

PATIENT
  Age: 12 Year
  Sex: Female

DRUGS (5)
  1. CYCLOPHOSPHAMIDE [Suspect]
     Indication: BURKITT'S LYMPHOMA
     Route: 042
  2. CYCLOPHOSPHAMIDE [Suspect]
     Route: 065
  3. METHOTREXATE [Suspect]
     Indication: BURKITT'S LYMPHOMA
     Route: 037
  4. HYDROCORTISONE [Concomitant]
     Indication: BURKITT'S LYMPHOMA
     Route: 037
  5. METOCLOPRAMIDE [Concomitant]
     Indication: VOMITING
     Route: 048

REACTIONS (6)
  - DEATH [None]
  - DIARRHOEA HAEMORRHAGIC [None]
  - HAEMOGLOBIN DECREASED [None]
  - KLEBSIELLA INFECTION [None]
  - PYREXIA [None]
  - WHITE BLOOD CELL COUNT DECREASED [None]
